FAERS Safety Report 15523383 (Version 2)
Quarter: 2018Q4

REPORT INFORMATION
  Report Type: Report from Study
  Country: US (occurrence: US)
  Receive Date: 20181018
  Receipt Date: 20181117
  Transmission Date: 20190205
  Serious: Yes (Hospitalization, Other)
  Sender: FDA-Public Use
  Company Number: PHEH2018US043370

PATIENT
  Sex: Female

DRUGS (1)
  1. GLEEVEC [Suspect]
     Active Substance: IMATINIB MESYLATE
     Indication: PRODUCT USED FOR UNKNOWN INDICATION
     Route: 065

REACTIONS (12)
  - Malaise [Unknown]
  - Chronic myeloid leukaemia [Unknown]
  - Bone disorder [Unknown]
  - Vomiting [Unknown]
  - Atrial fibrillation [Unknown]
  - Dehydration [Unknown]
  - Neoplasm malignant [Unknown]
  - Renal disorder [Unknown]
  - Nasopharyngitis [Unknown]
  - Amnesia [Unknown]
  - Diarrhoea [Unknown]
  - Palpitations [Unknown]
